FAERS Safety Report 7656594-6 (Version None)
Quarter: 2011Q3

REPORT INFORMATION
  Report Type: 
  Country: None (occurrence: None)
  Receive Date: 20110804
  Receipt Date: 20110526
  Transmission Date: 20111222
  Serious: No
  Sender: FDA-Public Use
  Company Number: US-BAUSCH-2011BL003537

PATIENT
  Age: 72 Year
  Sex: Male

DRUGS (5)
  1. OPCON-A [Suspect]
     Indication: OCULAR HYPERAEMIA
     Route: 047
     Dates: start: 20110525, end: 20110525
  2. NEURONTIN [Concomitant]
     Indication: SLEEP DISORDER
     Route: 048
  3. SEROQUEL [Concomitant]
     Indication: SLEEP DISORDER
     Route: 048
  4. ARTIFICIAL TEARS [Concomitant]
     Route: 047
     Dates: start: 20110525
  5. TRAZODONE HYDROCHLORIDE [Concomitant]
     Indication: SLEEP DISORDER
     Route: 048

REACTIONS (2)
  - CONDITION AGGRAVATED [None]
  - OCULAR HYPERAEMIA [None]
